FAERS Safety Report 6708598-5 (Version None)
Quarter: 2010Q2

REPORT INFORMATION
  Report Type: 
  Country: None (occurrence: None)
  Receive Date: 20100503
  Receipt Date: 20100426
  Transmission Date: 20101027
  Serious: Yes (Other)
  Sender: FDA-Public Use
  Company Number: US-ABBOTT-10P-163-0640677-00

PATIENT
  Sex: Female
  Weight: 91.708 kg

DRUGS (5)
  1. HUMIRA [Suspect]
     Indication: RHEUMATOID ARTHRITIS
     Dosage: UNSURE OF DOSE
     Route: 058
     Dates: start: 20030301, end: 20061101
  2. HUMIRA [Suspect]
     Route: 058
     Dates: start: 20061201, end: 20070201
  3. HUMIRA [Suspect]
     Route: 058
     Dates: start: 20080501, end: 20080701
  4. HUMIRA [Suspect]
     Route: 058
     Dates: start: 20080801, end: 20090701
  5. EXCEDRIN (MIGRAINE) [Concomitant]
     Indication: DRUG USE FOR UNKNOWN INDICATION
     Route: 048

REACTIONS (3)
  - ARTHRALGIA [None]
  - HAND DEFORMITY [None]
  - MOBILITY DECREASED [None]
